FAERS Safety Report 12539401 (Version 2)
Quarter: 2016Q3

REPORT INFORMATION
  Report Type: Spontaneous
  Country: VE (occurrence: VE)
  Receive Date: 20160708
  Receipt Date: 20160815
  Transmission Date: 20161109
  Serious: Yes (Hospitalization)
  Sender: FDA-Public Use
  Company Number: VE-ORION CORPORATION ORION PHARMA-ENTC2016-0359

PATIENT
  Age: 65 Year
  Sex: Male

DRUGS (4)
  1. STALEVO [Suspect]
     Active Substance: CARBIDOPA\ENTACAPONE\LEVODOPA
     Indication: PARKINSON^S DISEASE
     Dosage: STRENGTH: (100 AND 150 MG)
     Route: 048
  2. SERTRALINE [Concomitant]
     Active Substance: SERTRALINE HYDROCHLORIDE
     Route: 065
  3. BEFOL [Concomitant]
     Route: 065
  4. OXINORM [Concomitant]
     Active Substance: OXYCODONE HYDROCHLORIDE
     Route: 065

REACTIONS (7)
  - Dyspnoea [Unknown]
  - Gait disturbance [Unknown]
  - Hypokinesia [Unknown]
  - Abasia [Unknown]
  - Feeling abnormal [Unknown]
  - Product supply issue [Unknown]
  - Malaise [Unknown]

NARRATIVE: CASE EVENT DATE: 201511
